FAERS Safety Report 5293338-X (Version None)
Quarter: 2007Q2

REPORT INFORMATION
  Report Type: 
  Country: None (occurrence: None)
  Receive Date: 20070411
  Receipt Date: 20070405
  Transmission Date: 20071010
  Serious: Yes (Hospitalization)
  Sender: FDA-Public Use
  Company Number: FR-MERCK-0609FRA00075

PATIENT
  Age: 54 Year
  Sex: Female

DRUGS (5)
  1. FOSAMAX PLUS D [Suspect]
     Indication: OSTEOPOROSIS
     Route: 048
     Dates: start: 20060201, end: 20060925
  2. FOSAMAX PLUS D [Suspect]
     Route: 048
     Dates: start: 20070201
  3. ASPIRIN [Concomitant]
     Indication: CEREBROVASCULAR ACCIDENT
     Route: 048
     Dates: start: 19970101
  4. STATIN (UNSPECIFIED) [Concomitant]
     Indication: HYPERCHOLESTEROLAEMIA
     Route: 048
  5. COZAAR [Concomitant]
     Indication: HYPERTENSION
     Route: 048

REACTIONS (2)
  - EYE DISORDER [None]
  - HEADACHE [None]
